FAERS Safety Report 21025131 (Version 1)
Quarter: 2022Q2

REPORT INFORMATION
  Report Type: Spontaneous
  Country: CA (occurrence: None)
  Receive Date: 20220630
  Receipt Date: 20220630
  Transmission Date: 20220721
  Serious: Yes (Hospitalization)
  Sender: FDA-Public Use
  Company Number: CA-ROCHE-3125052

PATIENT
  Age: 75 Year
  Sex: Female

DRUGS (21)
  1. RITUXIMAB [Suspect]
     Active Substance: RITUXIMAB
     Indication: Product used for unknown indication
     Route: 065
  2. RITUXIMAB [Suspect]
     Active Substance: RITUXIMAB
     Route: 065
  3. RITUXIMAB [Suspect]
     Active Substance: RITUXIMAB
     Indication: Product used for unknown indication
     Route: 041
  4. RITUXIMAB [Suspect]
     Active Substance: RITUXIMAB
     Route: 041
  5. CYCLOBENZAPRINE [Concomitant]
     Active Substance: CYCLOBENZAPRINE
  6. AZATHIOPRINE [Concomitant]
     Active Substance: AZATHIOPRINE
  7. RAMIPRIL [Concomitant]
     Active Substance: RAMIPRIL
  8. DILTIAZEM [Concomitant]
     Active Substance: DILTIAZEM
  9. CALCIUM [Concomitant]
     Active Substance: CALCIUM
  10. ASPIRIN [Concomitant]
     Active Substance: ASPIRIN
  11. RISEDRONATE SODIUM [Concomitant]
     Active Substance: RISEDRONATE SODIUM
  12. TYLENOL [Concomitant]
     Active Substance: ACETAMINOPHEN
     Route: 048
  13. SOLU-MEDROL [Concomitant]
     Active Substance: METHYLPREDNISOLONE SODIUM SUCCINATE
     Route: 042
  14. PREDNISONE [Concomitant]
     Active Substance: PREDNISONE
  15. FLECAINIDE [Concomitant]
     Active Substance: FLECAINIDE
  16. VOLTAREN [Concomitant]
     Active Substance: DICLOFENAC SODIUM
  17. SYNTHROID [Concomitant]
     Active Substance: LEVOTHYROXINE SODIUM
  18. PREDNISONE [Concomitant]
     Active Substance: PREDNISONE
  19. LASIX [Concomitant]
     Active Substance: FUROSEMIDE
  20. PANTOPRAZOLE [Concomitant]
     Active Substance: PANTOPRAZOLE
  21. BENADRYL [Concomitant]
     Active Substance: DIPHENHYDRAMINE HYDROCHLORIDE
     Route: 048

REACTIONS (2)
  - Bacterial myositis [Recovered/Resolved]
  - Localised infection [Recovered/Resolved]
